FAERS Safety Report 23201221 (Version 12)
Quarter: 2025Q2

REPORT INFORMATION
  Report Type: Other
  Country: US (occurrence: US)
  Receive Date: 20231118
  Receipt Date: 20250507
  Transmission Date: 20250716
  Serious: Yes (Other)
  Sender: TRAVERE THERAPEUTICS
  Company Number: US-TRAVERE-2023TVT00532

PATIENT
  Age: 53 Year
  Sex: Female
  Weight: 61 kg

DRUGS (11)
  1. FILSPARI [Suspect]
     Active Substance: SPARSENTAN
     Indication: IgA nephropathy
     Route: 048
     Dates: start: 20230824
  2. FILSPARI [Suspect]
     Active Substance: SPARSENTAN
     Route: 048
  3. SODIUM BICARBONATE [Suspect]
     Active Substance: SODIUM BICARBONATE
     Indication: Product used for unknown indication
  4. ALLOPURINOL [Concomitant]
     Active Substance: ALLOPURINOL
  5. ATORVASTATIN [Concomitant]
     Active Substance: ATORVASTATIN
  6. FAMOTIDINE [Concomitant]
     Active Substance: FAMOTIDINE
  7. HUMIRA [Concomitant]
     Active Substance: ADALIMUMAB
  8. IMODIUM [Concomitant]
     Active Substance: LOPERAMIDE HYDROCHLORIDE
  9. METHOCARBAMOL [Concomitant]
     Active Substance: METHOCARBAMOL
  10. VITAMIN D [Concomitant]
     Active Substance: VITAMIN D NOS
  11. HYDROCORTISONE [Concomitant]
     Active Substance: HYDROCORTISONE

REACTIONS (17)
  - Hepatic cirrhosis [Unknown]
  - Abdominal discomfort [Unknown]
  - Abdominal distension [Unknown]
  - Diarrhoea [Unknown]
  - Incorrect dose administered [Unknown]
  - Nasopharyngitis [None]
  - Eye pruritus [Unknown]
  - Rhinorrhoea [Unknown]
  - Nasal congestion [None]
  - Tonsillar erythema [Unknown]
  - Illness [Unknown]
  - Product dose omission issue [Unknown]
  - Hypersensitivity [Unknown]
  - Lacrimation increased [Unknown]
  - Oropharyngeal pain [Unknown]
  - Dysphagia [Unknown]
  - Cough [Unknown]

NARRATIVE: CASE EVENT DATE: 20240216
